FAERS Safety Report 9493487 (Version 2)
Quarter: 2013Q3

REPORT INFORMATION
  Report Type: Spontaneous
  Country: US (occurrence: US)
  Receive Date: 20130902
  Receipt Date: 20130906
  Transmission Date: 20140515
  Serious: Yes (Hospitalization, Other)
  Sender: FDA-Public Use
  Company Number: US-MERCK-1308USA014801

PATIENT
  Age: 49 Year
  Sex: Female
  Weight: 104.31 kg

DRUGS (22)
  1. JANUVIA [Suspect]
     Indication: DIABETES MELLITUS
     Dosage: 100 MG, QD
     Route: 048
     Dates: start: 201209, end: 201305
  2. DEXILANT [Concomitant]
     Dosage: 1CAPSULE DAILY
     Dates: start: 20130604
  3. EFFEXOR XR [Concomitant]
     Dosage: ONE TABLET ONCE DAILY
     Route: 048
     Dates: start: 20130530
  4. METFORMIN HYDROCHLORIDE [Concomitant]
     Dosage: ONE TABLET TWICE DAILY
     Route: 048
     Dates: start: 20130524
  5. PRILOSEC [Concomitant]
     Dosage: 2 TABLETS ONCE DAILY
     Route: 048
     Dates: start: 20130520
  6. LASIX (FUROSEMIDE) [Concomitant]
     Dosage: ONE TABLET ONCE DAILY
     Route: 048
     Dates: start: 20130520
  7. LOTENSIN (CAPTOPRIL) [Concomitant]
     Dosage: 1 TABLET DAILY
     Dates: start: 20130509
  8. LANTUS [Concomitant]
     Dosage: UNK, AS DIR AT BEDTIME, TAKE 40 UNITS HS, THEN ADJUST ACCORDING TO SCALE
     Dates: start: 20130509
  9. MICRONASE [Concomitant]
     Dosage: 2 TABLETS TWICE DAILY
     Route: 048
     Dates: start: 20130424
  10. SIMVASTATIN TABLETS, USP [Concomitant]
     Dosage: ONE TABLET EACH EVENING
     Route: 048
     Dates: start: 20130408
  11. NEEDLE [Concomitant]
     Dosage: UNK, 8 MM , 31 GUAGE
     Dates: start: 20130314
  12. HUMALOG [Concomitant]
     Dosage: UNK, TAKE UPTO 10 UNITS LESS THAN 15 MINUTES BEFORE EACH MEAL UPTO THREE TIMES DAILY
     Dates: start: 20130221
  13. VITAMIN D (UNSPECIFIED) [Concomitant]
     Dosage: TAKE 1 TABLET ONCE WEEKLY X 8 WEEKS, THEN TAKE 1 TABLET ONCE A MONTH
     Route: 048
     Dates: start: 20130131
  14. PROVENTIL [Concomitant]
     Dosage: 2 PUFFS EVERY 4 HOURS PRN
     Dates: start: 20120912
  15. KLONOPIN [Concomitant]
     Dosage: 1 TABLET AT BEDTIME
     Dates: start: 20120912
  16. ALBUTEROL [Concomitant]
     Dosage: STRENGTH 0.083 SOL, 3 ML EVERY 4 HOURS
     Dates: start: 20120912
  17. MINERALS (UNSPECIFIED) (+) VITAMINS (UNSPECIFIED) [Concomitant]
     Dosage: ONE TABLET ONCE DAILY
     Route: 048
     Dates: start: 20120614
  18. MAG OX [Concomitant]
     Dosage: 400 MG ONE TABLET DAILY
     Route: 048
     Dates: start: 20120412
  19. XANAX [Concomitant]
     Dosage: 1 TABLET, THREEE TIMES DAILY , PRN
     Route: 048
     Dates: start: 20120229
  20. OMEGA-3 MARINE TRIGLYCERIDES [Concomitant]
     Dosage: 1 DF, QD
     Dates: start: 20130523
  21. UBIDECARENONE [Concomitant]
     Dosage: UNK
     Dates: start: 20100601
  22. ASPIRIN [Concomitant]
     Dosage: 1 UNK, UNK
     Dates: start: 20080821

REACTIONS (1)
  - Pancreatitis [Recovered/Resolved]
